FAERS Safety Report 19422284 (Version 1)
Quarter: 2021Q2

REPORT INFORMATION
  Report Type: Spontaneous
  Country: CA (occurrence: CA)
  Receive Date: 20210616
  Receipt Date: 20210616
  Transmission Date: 20210717
  Serious: Yes (Other)
  Sender: FDA-Public Use
  Company Number: CA-TEVA-2021-CA-1922148

PATIENT
  Age: 13 Year
  Sex: Female
  Weight: 47 kg

DRUGS (8)
  1. VITAMIN D [Concomitant]
     Active Substance: VITAMIN D NOS
     Route: 065
  2. GABAPENTIN. [Concomitant]
     Active Substance: GABAPENTIN
     Route: 065
  3. LANSOPRAZOLE. [Concomitant]
     Active Substance: LANSOPRAZOLE
     Route: 065
  4. FLUOXETINE [Concomitant]
     Active Substance: FLUOXETINE HYDROCHLORIDE
     Route: 065
  5. GRANISETRON [Concomitant]
     Active Substance: GRANISETRON
     Route: 065
  6. NABILONE [Concomitant]
     Active Substance: NABILONE
     Route: 065
  7. ZOLEDRONIC ACID FOR INJECTION [Suspect]
     Active Substance: ZOLEDRONIC ACID
     Indication: OSTEOPOROSIS
     Route: 042
  8. VINBLASTINE SULFATE INJECTION [Concomitant]
     Active Substance: VINBLASTINE SULFATE
     Route: 065

REACTIONS (5)
  - Myalgia [Unknown]
  - Nausea [Unknown]
  - Thrombosis [Unknown]
  - Vomiting [Unknown]
  - Haematemesis [Unknown]
